FAERS Safety Report 20722680 (Version 2)
Quarter: 2022Q2

REPORT INFORMATION
  Report Type: Report from Study
  Country: MX (occurrence: MX)
  Receive Date: 20220419
  Receipt Date: 20220510
  Transmission Date: 20220721
  Serious: Yes (Other)
  Sender: FDA-Public Use
  Company Number: MX-NOVARTISPH-NVSC2022MX084025

PATIENT
  Age: 56 Year
  Sex: Female
  Weight: 89 kg

DRUGS (4)
  1. EXELON [Suspect]
     Active Substance: RIVASTIGMINE TARTRATE
     Indication: Parkinson^s disease
     Dosage: 0.5 DOSAGE FORM (9MG ) , QD, DIRECTLY ON THE SKIN
     Route: 062
     Dates: start: 202105
  2. EXELON [Suspect]
     Active Substance: RIVASTIGMINE TARTRATE
     Indication: Anxiety
  3. EXELON [Suspect]
     Active Substance: RIVASTIGMINE TARTRATE
     Indication: Depression
  4. LEVODOPA [Concomitant]
     Active Substance: LEVODOPA
     Indication: Parkinson^s disease
     Dosage: 0.25 DOSAGE FORM, FOUR TIMES A DAY, BY MOUTH
     Route: 048
     Dates: start: 2018

REACTIONS (9)
  - Ileus paralytic [Recovered/Resolved with Sequelae]
  - COVID-19 [Recovered/Resolved]
  - Headache [Recovered/Resolved]
  - Back pain [Recovered/Resolved]
  - Bone pain [Recovered/Resolved]
  - Fatigue [Recovered/Resolved with Sequelae]
  - Pain [Recovered/Resolved]
  - Product prescribing error [Unknown]
  - Off label use [Unknown]

NARRATIVE: CASE EVENT DATE: 20210501
